FAERS Safety Report 9103445 (Version 1)
Quarter: 2013Q1

REPORT INFORMATION
  Report Type: Spontaneous
  Country: ES (occurrence: ES)
  Receive Date: 20130218
  Receipt Date: 20130218
  Transmission Date: 20140127
  Serious: Yes (Other)
  Sender: FDA-Public Use
  Company Number: ES-ROCHE-1175583

PATIENT
  Age: 66 Year
  Sex: Male

DRUGS (5)
  1. ACTILYSE [Suspect]
     Indication: MYOCARDIAL INFARCTION
     Dosage: DOSE: 10 MG INITIAL
     Route: 040
  2. ACTILYSE [Suspect]
     Dosage: DOSE: 50 MG AT ONE HOUR
     Route: 042
  3. ACTILYSE [Suspect]
     Dosage: DOSE : 40 MG IN FOLLOWING TWO HOURS
     Route: 042
  4. CALCIUM HEPARIN [Concomitant]
     Dosage: DOSE: 7500 U /12 H
     Route: 058
  5. ASPIRIN [Concomitant]
     Route: 065

REACTIONS (4)
  - Haemorrhage intracranial [Unknown]
  - Aphasia [Unknown]
  - Depression [Unknown]
  - Hemiplegia [Not Recovered/Not Resolved]
